APPROVED DRUG PRODUCT: DESONIDE
Active Ingredient: DESONIDE
Strength: 0.05%
Dosage Form/Route: CREAM;TOPICAL
Application: A209729 | Product #001
Applicant: GLENMARK SPECIALTY SA
Approved: Jul 24, 2017 | RLD: No | RS: No | Type: DISCN